FAERS Safety Report 5239495-2 (Version None)
Quarter: 2007Q1

REPORT INFORMATION
  Report Type: 
  Country: None (occurrence: None)
  Receive Date: 20061208
  Receipt Date: 20060525
  Transmission Date: 20070707
  Serious: Yes (Other)
  Sender: FDA-Public Use
  Company Number: 2006UW10288

PATIENT
  Age: 59 Year
  Sex: Male
  Weight: 77.11 kg

DRUGS (5)
  1. CRESTOR [Suspect]
     Indication: BLOOD CHOLESTEROL INCREASED
     Dosage: 10 MG PO
     Route: 048
     Dates: start: 20060525
  2. COLESTID [Concomitant]
  3. LISINOPRIL [Concomitant]
  4. VALIUM [Concomitant]
  5. LORCET-HD [Concomitant]

REACTIONS (1)
  - BLOOD PRESSURE DECREASED [None]
